FAERS Safety Report 13268219 (Version 2)
Quarter: 2017Q2

REPORT INFORMATION
  Report Type: Spontaneous
  Country: US (occurrence: US)
  Receive Date: 20170224
  Receipt Date: 20170405
  Transmission Date: 20170830
  Serious: No
  Sender: FDA-Public Use
  Company Number: US-009507513-1702USA010110

PATIENT
  Sex: Male
  Weight: 26.98 kg

DRUGS (1)
  1. SINGULAIR [Suspect]
     Active Substance: MONTELUKAST SODIUM
     Indication: ASTHMA
     Dosage: 5 MG, QD
     Route: 048
     Dates: start: 20141008, end: 20160909

REACTIONS (2)
  - Abnormal behaviour [Recovering/Resolving]
  - Aggression [Not Recovered/Not Resolved]
